FAERS Safety Report 7231275-1 (Version None)
Quarter: 2011Q1

REPORT INFORMATION
  Report Type: 
  Country: None (occurrence: None)
  Receive Date: 20110118
  Receipt Date: 20110113
  Transmission Date: 20110831
  Serious: Yes (Life-Threatening, Hospitalization)
  Sender: FDA-Public Use
  Company Number: NL-ROCHE-753347

PATIENT
  Sex: Female
  Weight: 60 kg

DRUGS (3)
  1. OMEPRAZOLE [Concomitant]
     Dosage: FREQUENCY: NOT PROVIDED
     Route: 048
     Dates: start: 20080101
  2. MOVICOLON [Concomitant]
     Indication: CONSTIPATION
     Dosage: FREQUENCY: PRN
     Route: 048
     Dates: start: 20090101
  3. HERCEPTIN [Suspect]
     Route: 042
     Dates: start: 20101216, end: 20101217

REACTIONS (2)
  - CARDIAC ARREST [None]
  - CIRCULATORY COLLAPSE [None]
